FAERS Safety Report 24833761 (Version 1)
Quarter: 2025Q1

REPORT INFORMATION
  Report Type: Spontaneous
  Country: US (occurrence: US)
  Receive Date: 20250112
  Receipt Date: 20250112
  Transmission Date: 20250409
  Serious: No
  Sender: BAUSCH AND LOMB
  Company Number: US-BAUSCHBL-2025BNL000362

PATIENT
  Sex: Female

DRUGS (2)
  1. XIIDRA [Suspect]
     Active Substance: LIFITEGRAST
     Indication: Dry eye
     Route: 047
  2. XIIDRA [Suspect]
     Active Substance: LIFITEGRAST
     Route: 047

REACTIONS (2)
  - Ill-defined disorder [Unknown]
  - Product prescribing error [Unknown]
